FAERS Safety Report 11441337 (Version 1)
Quarter: 2015Q3

REPORT INFORMATION
  Report Type: Spontaneous
  Country: US (occurrence: US)
  Receive Date: 20150821
  Receipt Date: 20150821
  Transmission Date: 20151125
  Serious: No
  Sender: FDA-Public Use
  Company Number: US-ELI_LILLY_AND_COMPANY-US200805005323

PATIENT
  Sex: Female

DRUGS (1)
  1. CYMBALTA [Suspect]
     Active Substance: DULOXETINE HYDROCHLORIDE
     Dosage: UNK, UNK

REACTIONS (31)
  - Hyperhidrosis [Unknown]
  - Diarrhoea [Unknown]
  - Dysuria [Unknown]
  - Headache [Unknown]
  - Abdominal pain lower [Unknown]
  - Sleep disorder [Unknown]
  - Sensory disturbance [Unknown]
  - Drug dependence [Unknown]
  - Exposure during pregnancy [Unknown]
  - Somnolence [Unknown]
  - Asthenia [Unknown]
  - Nervousness [Unknown]
  - Mania [Unknown]
  - Mood swings [Unknown]
  - Cold sweat [Unknown]
  - Dry mouth [Unknown]
  - Nausea [Unknown]
  - Night sweats [Unknown]
  - Insomnia [Unknown]
  - Irritable bowel syndrome [Unknown]
  - Lethargy [Unknown]
  - Restlessness [Unknown]
  - Withdrawal syndrome [Unknown]
  - Suicidal ideation [Unknown]
  - Irritability [Unknown]
  - Pressure of speech [Unknown]
  - Rash [Unknown]
  - Sexual dysfunction [Unknown]
  - Dizziness [Unknown]
  - Nightmare [Unknown]
  - Memory impairment [Unknown]

NARRATIVE: CASE EVENT DATE: 200804
